FAERS Safety Report 14725618 (Version 2)
Quarter: 2018Q2

REPORT INFORMATION
  Report Type: Report from Study
  Country: None (occurrence: CR)
  Receive Date: 20180406
  Receipt Date: 20180508
  Transmission Date: 20180711
  Serious: Yes (Hospitalization)
  Sender: FDA-Public Use
  Company Number: CR-ABBVIE-18K-039-2312533-00

PATIENT
  Sex: Female
  Weight: 68 kg

DRUGS (5)
  1. AZATHIOPRINE. [Concomitant]
     Active Substance: AZATHIOPRINE
     Indication: COLITIS ULCERATIVE
     Route: 048
     Dates: start: 2010
  2. METHOTREXATE. [Concomitant]
     Active Substance: METHOTREXATE
     Indication: COLITIS ULCERATIVE
     Route: 058
     Dates: start: 2010
  3. HUMIRA [Suspect]
     Active Substance: ADALIMUMAB
     Route: 058
     Dates: start: 2018
  4. HUMIRA [Suspect]
     Active Substance: ADALIMUMAB
     Indication: COLITIS ULCERATIVE
     Route: 058
     Dates: start: 2016, end: 20180308
  5. PENTASET [Concomitant]
     Indication: COLITIS ULCERATIVE
     Route: 054
     Dates: start: 2010

REACTIONS (7)
  - Diarrhoea [Recovered/Resolved]
  - Urine analysis abnormal [Recovered/Resolved]
  - Kidney infection [Recovered/Resolved]
  - Blood test abnormal [Recovered/Resolved]
  - Intestinal obstruction [Recovered/Resolved]
  - Stool analysis abnormal [Recovered/Resolved]
  - Pain [Recovered/Resolved]

NARRATIVE: CASE EVENT DATE: 2018
